FAERS Safety Report 10771537 (Version 1)
Quarter: 2015Q1

REPORT INFORMATION
  Report Type: Spontaneous
  Country: AT (occurrence: AT)
  Receive Date: 20150206
  Receipt Date: 20150206
  Transmission Date: 20150721
  Serious: Yes (Life-Threatening, Hospitalization, Other)
  Sender: FDA-Public Use
  Company Number: AT-WATSON-2015-01262

PATIENT
  Age: 2 Year
  Sex: Male

DRUGS (1)
  1. LIDOCAINE (WATSON LABORATORIES) [Suspect]
     Active Substance: LIDOCAINE
     Indication: APHTHOUS STOMATITIS
     Dosage: 500 MG, SINGLE
     Route: 048

REACTIONS (6)
  - Respiratory failure [None]
  - Posterior reversible encephalopathy syndrome [Recovered/Resolved]
  - Accidental overdose [Recovered/Resolved]
  - Product package associated injury [Unknown]
  - Cardiac arrest [Recovered/Resolved]
  - Status epilepticus [Recovered/Resolved]
